FAERS Safety Report 7904937 (Version 2)
Quarter: 2014Q1

REPORT INFORMATION
  Report Type: Spontaneous
  Country: US (occurrence: US)
  Receive Date: 20110419
  Receipt Date: 20140110
  Transmission Date: 20141002
  Serious: Yes (Death, Other)
  Sender: FDA-Public Use
  Company Number: PHHY2011GB31594

PATIENT
  Age: 36 Year
  Sex: Male

DRUGS (22)
  1. QUETIAPINE [Suspect]
     Dosage: 100 MG TO 150 MG DAILY
  2. TRAMADOL [Interacting]
     Dosage: 50 MG, UNK
  3. TRAZODONE [Interacting]
     Dosage: 75 MG, QD
  4. TRAZODONE [Interacting]
     Dosage: 100 MG, QD
  5. VENLAFAXINE HYDROCHLORIDE [Interacting]
     Dosage: 300 MG, QD
  6. VENLAFAXINE HYDROCHLORIDE [Interacting]
     Dosage: 225 MG, QD
  7. ACETAMINOPHEN [Concomitant]
  8. BENZONATATE [Concomitant]
  9. CHLORDIAZEPOXIDE [Concomitant]
  10. DOCUSATE SODIUM [Concomitant]
  11. ENALAPRIL [Concomitant]
  12. FAMOTIDINE [Concomitant]
  13. FOLIC ACID [Concomitant]
  14. FUROSEMIDE [Concomitant]
  15. LANSOPRAZOLE [Concomitant]
  16. LITHIUM [Concomitant]
     Dosage: 1200 MG, UNK
  17. LORAZEPAM [Concomitant]
  18. METOCLOPRAMIDE [Concomitant]
  19. METOPROLOL [Concomitant]
  20. RANITIDINE [Concomitant]
  21. TEMAZEPAM [Concomitant]
  22. VITAMIN B COMPLEX [Concomitant]

REACTIONS (4)
  - Convulsion [Fatal]
  - Tremor [Fatal]
  - Insomnia [Unknown]
  - Drug interaction [Unknown]
